FAERS Safety Report 6366261-7 (Version None)
Quarter: 2009Q3

REPORT INFORMATION
  Report Type: 
  Country: None (occurrence: None)
  Receive Date: 20090915
  Receipt Date: 20090903
  Transmission Date: 20100115
  Serious: Yes (Hospitalization)
  Sender: FDA-Public Use
  Company Number: 230039M09FRA

PATIENT
  Age: 50 Year
  Sex: Female

DRUGS (2)
  1. REBIF [Suspect]
     Dosage: NOT REPORTED, NOT REPORTED, SUBCUTANEOUS
     Route: 058
     Dates: end: 20090401
  2. AMANTADINE HCL [Suspect]
     Dates: end: 20090401

REACTIONS (3)
  - LEFT VENTRICULAR FAILURE [None]
  - MALIGNANT HYPERTENSION [None]
  - TROPONIN INCREASED [None]
